FAERS Safety Report 23276733 (Version 1)
Quarter: 2023Q4

REPORT INFORMATION
  Report Type: Spontaneous
  Country: IT (occurrence: None)
  Receive Date: 20231208
  Receipt Date: 20231208
  Transmission Date: 20240110
  Serious: Yes (Other)
  Sender: FDA-Public Use
  Company Number: None

PATIENT
  Age: 70 Year
  Sex: Male

DRUGS (4)
  1. BEVACIZUMAB [Suspect]
     Active Substance: BEVACIZUMAB
     Indication: Colon cancer
     Dosage: START OF THERAPY 03/12/2022 - THERAPY EVERY 14 DAYS - X AND XI CYCLE
     Route: 065
     Dates: start: 20230516, end: 20230530
  2. FLUOROURACIL [Suspect]
     Active Substance: FLUOROURACIL
     Indication: Colon cancer
     Dosage: START OF THERAPY 03/12/2022 - THERAPY EVERY 14 DAYS - X AND XI CYCLE
     Route: 065
     Dates: start: 20230516, end: 20230530
  3. FLUOROURACIL [Suspect]
     Active Substance: FLUOROURACIL
     Dosage: START OF THERAPY 03/12/2022 - THERAPY EVERY 14 DAYS - X AND XI CYCLE
     Route: 065
     Dates: start: 20230516, end: 20230530
  4. OXALIPLATIN [Suspect]
     Active Substance: OXALIPLATIN
     Indication: Colon cancer
     Dosage: START OF THERAPY 03/12/2022 - THERAPY EVERY 14 DAYS - X AND XI CYCLE
     Route: 065
     Dates: start: 20230516, end: 20230530

REACTIONS (3)
  - Azotaemia [Recovering/Resolving]
  - Neutropenia [Recovering/Resolving]
  - Leukopenia [Recovering/Resolving]

NARRATIVE: CASE EVENT DATE: 20230523
